FAERS Safety Report 18865540 (Version 1)
Quarter: 2021Q1

REPORT INFORMATION
  Report Type: Spontaneous
  Country: US (occurrence: US)
  Receive Date: 20210209
  Receipt Date: 20210209
  Transmission Date: 20210420
  Serious: Yes (Hospitalization)
  Sender: FDA-Public Use
  Company Number: None

PATIENT
  Age: 51 Year
  Sex: Female
  Weight: 111 kg

DRUGS (2)
  1. BALMANIVIMAB [Concomitant]
     Dates: start: 20210202, end: 20210202
  2. BAMLANIVIMAB. [Suspect]
     Active Substance: BAMLANIVIMAB
     Indication: COVID-19
     Dosage: ?          OTHER FREQUENCY:ONCE;?
     Route: 041
     Dates: start: 20210202, end: 20210202

REACTIONS (3)
  - Lip oedema [None]
  - Rash pruritic [None]
  - Face oedema [None]

NARRATIVE: CASE EVENT DATE: 20210202
